FAERS Safety Report 4864121-1 (Version None)
Quarter: 2005Q4

REPORT INFORMATION
  Report Type: 
  Country: None (occurrence: None)
  Receive Date: 20051222
  Receipt Date: 20051103
  Transmission Date: 20060501
  Serious: Yes (Other)
  Sender: FDA-Public Use
  Company Number: FR-GLAXOSMITHKLINE-B0400005A

PATIENT
  Age: 83 Year
  Sex: Male
  Weight: 70 kg

DRUGS (7)
  1. SERETIDE [Suspect]
     Indication: BRONCHOPNEUMOPATHY
     Dosage: 4PUFF TWICE PER DAY
     Route: 055
     Dates: start: 20030101
  2. DIAMICRON [Concomitant]
     Dosage: .5UNIT TWICE PER DAY
     Dates: end: 20041101
  3. KARDEGIC [Concomitant]
     Indication: HYPERTENSIVE HEART DISEASE
  4. ALDACTONE [Concomitant]
     Indication: HYPERTENSIVE HEART DISEASE
     Dosage: 25MG PER DAY
  5. BUMETANIDE [Concomitant]
     Indication: HYPERTENSIVE HEART DISEASE
     Dosage: 1MG ALTERNATE DAYS
  6. DIGOXIN [Concomitant]
     Indication: HYPERTENSIVE HEART DISEASE
  7. TRIATEC [Concomitant]
     Indication: HYPERTENSIVE HEART DISEASE
     Dosage: 1.25MG PER DAY
     Dates: start: 20040401

REACTIONS (4)
  - DIABETES MELLITUS NON-INSULIN-DEPENDENT [None]
  - GENERAL PHYSICAL HEALTH DETERIORATION [None]
  - HYPERGLYCAEMIA [None]
  - WEIGHT DECREASED [None]
